FAERS Safety Report 22251606 (Version 2)
Quarter: 2023Q2

REPORT INFORMATION
  Report Type: Spontaneous
  Country: US (occurrence: US)
  Receive Date: 20230425
  Receipt Date: 20230501
  Transmission Date: 20230722
  Serious: No
  Sender: FDA-Public Use
  Company Number: US-PFIZER INC-202300067366

PATIENT
  Age: 79 Year
  Sex: Male
  Weight: 104.3 kg

DRUGS (1)
  1. IBRANCE [Suspect]
     Active Substance: PALBOCICLIB
     Indication: Neoplasm malignant
     Dosage: 125 MG, CYCLIC (21 DAYS AND THEN OFF FOR 7 DAYS)

REACTIONS (1)
  - Burnout syndrome [Unknown]
